FAERS Safety Report 9834115 (Version 7)
Quarter: 2015Q2

REPORT INFORMATION
  Report Type: Report from Study
  Country: FR (occurrence: FR)
  Receive Date: 20140122
  Receipt Date: 20150626
  Transmission Date: 20150821
  Serious: Yes (Other)
  Sender: FDA-Public Use
  Company Number: FR-UCBSA-108839

PATIENT
  Age: 63 Year
  Sex: Female
  Weight: 53 kg

DRUGS (9)
  1. CORTANCYL [Suspect]
     Active Substance: PREDNISONE
     Dosage: 7.5 MG DAILY
     Dates: start: 2006
  2. CORTANCYL [Suspect]
     Active Substance: PREDNISONE
     Indication: RHEUMATOID ARTHRITIS
     Dosage: 10 MG DAILY
  3. CORTANCYL [Suspect]
     Active Substance: PREDNISONE
     Dosage: 8 MG, ONCE DAILY (QD)
     Route: 048
     Dates: start: 20110328
  4. DAFALGAN [Concomitant]
     Active Substance: ACETAMINOPHEN
     Indication: PAIN
     Dosage: 1 TO 4 TABLETS DAILY
  5. CERTOLIZUMAB PEGOL RA [Suspect]
     Active Substance: CERTOLIZUMAB PEGOL
     Dosage: 400 MG, MONTHLY (QM)
  6. INEXIUM [Concomitant]
     Active Substance: ESOMEPRAZOLE
     Dosage: 40 MG DAILY
  7. CERTOLIZUMAB PEGOL RA [Suspect]
     Active Substance: CERTOLIZUMAB PEGOL
     Dosage: 400 MG, EV 2 WEEKS(QOW)
     Route: 058
     Dates: start: 20120604
  8. INEXIUM [Concomitant]
     Active Substance: ESOMEPRAZOLE
     Indication: GASTROOESOPHAGEAL REFLUX DISEASE
     Dosage: 20 MG
     Dates: start: 2010
  9. CERTOLIZUMAB PEGOL RA [Suspect]
     Active Substance: CERTOLIZUMAB PEGOL
     Indication: RHEUMATOID ARTHRITIS
     Dosage: 200 MG, EV 2 WEEKS(QOW)
     Route: 058
     Dates: start: 201205, end: 20131104

REACTIONS (2)
  - Oesophageal candidiasis [Not Recovered/Not Resolved]
  - Oral candidiasis [Not Recovered/Not Resolved]

NARRATIVE: CASE EVENT DATE: 20131104
